FAERS Safety Report 20277686 (Version 2)
Quarter: 2022Q1

REPORT INFORMATION
  Report Type: Spontaneous
  Country: US (occurrence: US)
  Receive Date: 20220103
  Receipt Date: 20220109
  Transmission Date: 20220424
  Serious: No
  Sender: FDA-Public Use
  Company Number: US-ORGANON-O2112USA002125

PATIENT
  Age: 26 Year
  Sex: Female
  Weight: 156.46 kg

DRUGS (1)
  1. NEXPLANON [Suspect]
     Active Substance: ETONOGESTREL
     Indication: Contraception
     Dosage: 68 MILLIGRAM, ONCE, LEFT ARM
     Route: 059
     Dates: start: 20210412, end: 20211129

REACTIONS (3)
  - Implant site swelling [Unknown]
  - Device breakage [Recovered/Resolved]
  - Complication associated with device [Not Recovered/Not Resolved]

NARRATIVE: CASE EVENT DATE: 20210101
